FAERS Safety Report 9877129 (Version 2)
Quarter: 2014Q1

REPORT INFORMATION
  Report Type: Spontaneous
  Country: FR (occurrence: FR)
  Receive Date: 20140206
  Receipt Date: 20140206
  Transmission Date: 20141002
  Serious: Yes (Other)
  Sender: FDA-Public Use
  Company Number: FR-JNJFOC-20140103288

PATIENT
  Age: 44 Year
  Sex: Female
  Weight: 60 kg

DRUGS (3)
  1. XEPLION [Suspect]
     Indication: SCHIZOPHRENIA
     Route: 030
     Dates: start: 20131119, end: 20131217
  2. PRAZEPAM [Concomitant]
     Indication: ANXIETY
     Route: 048
     Dates: start: 20131119
  3. LEPTICUR [Concomitant]
     Indication: IMPATIENCE
     Route: 048
     Dates: start: 20131119, end: 20140128

REACTIONS (2)
  - Rash maculo-papular [Not Recovered/Not Resolved]
  - Prurigo [Not Recovered/Not Resolved]
